FAERS Safety Report 19201212 (Version 5)
Quarter: 2021Q4

REPORT INFORMATION
  Report Type: Spontaneous
  Country: US (occurrence: US)
  Receive Date: 20210430
  Receipt Date: 20211028
  Transmission Date: 20220303
  Serious: Yes (Hospitalization)
  Sender: FDA-Public Use
  Company Number: US-KARYOPHARM-2021KPT000580

PATIENT

DRUGS (1)
  1. XPOVIO [Suspect]
     Active Substance: SELINEXOR
     Indication: Plasma cell myeloma
     Dosage: 100 MG, WEEKLY, ORAL
     Route: 048
     Dates: start: 20210401, end: 202104

REACTIONS (4)
  - Acute kidney injury [Unknown]
  - Confusional state [Unknown]
  - Decreased appetite [Unknown]
  - Nightmare [Unknown]

NARRATIVE: CASE EVENT DATE: 20210401
